FAERS Safety Report 20050056 (Version 1)
Quarter: 2021Q4

REPORT INFORMATION
  Report Type: Spontaneous
  Country: US (occurrence: None)
  Receive Date: 20211109
  Receipt Date: 20211109
  Transmission Date: 20220303
  Serious: No
  Sender: FDA-Public Use
  Company Number: None

PATIENT

DRUGS (2)
  1. CHLORHEXIDINE GLUCONATE [Suspect]
     Active Substance: CHLORHEXIDINE GLUCONATE
  2. LACTULOSE [Suspect]
     Active Substance: LACTULOSE

REACTIONS (3)
  - Incorrect route of product administration [None]
  - Product packaging confusion [None]
  - Product preparation issue [None]
